FAERS Safety Report 8525172-9 (Version None)
Quarter: 2012Q3

REPORT INFORMATION
  Report Type: 
  Country: None (occurrence: None)
  Receive Date: 20120720
  Receipt Date: 20120716
  Transmission Date: 20120928
  Serious: Yes (Other)
  Sender: FDA-Public Use
  Company Number: PHEH2012US013050

PATIENT
  Sex: Female

DRUGS (7)
  1. LASIX [Concomitant]
     Indication: OEDEMA
     Dosage: 40 MG, DAILY
     Route: 048
  2. POTASSIUM CHLORIDE [Concomitant]
     Indication: HYPOKALAEMIA
  3. VITAMIN D [Concomitant]
  4. ASPIRIN [Concomitant]
  5. DILTIAZEM [Concomitant]
     Indication: HYPERTENSION
     Dosage: 360 MG, DAILY
     Route: 048
  6. OMEPRAZOLE [Concomitant]
     Indication: GASTROOESOPHAGEAL REFLUX DISEASE
     Dosage: 20 MG, DAILY
     Route: 048
  7. RECLAST [Suspect]
     Dosage: UNK UKN, UNK
     Route: 042
     Dates: start: 20100615

REACTIONS (2)
  - TEETH BRITTLE [None]
  - DENTAL CARIES [None]
